FAERS Safety Report 15736278 (Version 1)
Quarter: 2018Q4

REPORT INFORMATION
  Report Type: Spontaneous
  Country: CH (occurrence: CH)
  Receive Date: 20181218
  Receipt Date: 20181218
  Transmission Date: 20190205
  Serious: Yes (Other)
  Sender: FDA-Public Use
  Company Number: CH-TAKEDA-2018TUS035919

PATIENT
  Age: 53 Year
  Sex: Male
  Weight: 104 kg

DRUGS (2)
  1. LEVOTHYROXINE. [Concomitant]
     Active Substance: LEVOTHYROXINE
     Indication: PRODUCT USED FOR UNKNOWN INDICATION
     Dosage: UNK
     Route: 065
  2. ADENURIC [Suspect]
     Active Substance: FEBUXOSTAT
     Indication: GOUT
     Dosage: 80 MG, QD
     Route: 048
     Dates: start: 20180926, end: 20181125

REACTIONS (1)
  - Rash generalised [Recovered/Resolved]

NARRATIVE: CASE EVENT DATE: 20181125
